FAERS Safety Report 16324491 (Version 1)
Quarter: 2019Q2

REPORT INFORMATION
  Report Type: Spontaneous
  Country: DE (occurrence: DE)
  Receive Date: 20190517
  Receipt Date: 20190517
  Transmission Date: 20190711
  Serious: No
  Sender: FDA-Public Use
  Company Number: DE-HORMOSAN PHARMA GMBH-2019-00677

PATIENT
  Sex: Male

DRUGS (1)
  1. QUETIAPIN-HORMOSAN 100 MG FILMTABLETTEN [Suspect]
     Active Substance: QUETIAPINE FUMARATE
     Indication: DEPRESSION
     Dosage: 100 MILLIGRAM, QD (STARTED 10 YEARS AGO)
     Route: 048

REACTIONS (1)
  - Tinnitus [Unknown]
